FAERS Safety Report 7544987-7 (Version None)
Quarter: 2011Q2

REPORT INFORMATION
  Report Type: 
  Country: None (occurrence: None)
  Receive Date: 20110614
  Receipt Date: 20110105
  Transmission Date: 20111010
  Serious: Yes (Hospitalization, Other)
  Sender: FDA-Public Use
  Company Number: US-BAYER-201029502NA

PATIENT
  Age: 37 Year
  Sex: Female
  Weight: 89 kg

DRUGS (7)
  1. YAZ [Suspect]
     Indication: ORAL CONTRACEPTION
     Dosage: UNK UNK, QD
     Route: 048
     Dates: start: 20080701, end: 20081001
  2. VALTREX [Concomitant]
     Indication: HERPES VIRUS INFECTION
     Dosage: 500 MG, BID
     Dates: start: 20030101
  3. METRONIDAZOLE [Concomitant]
     Dosage: 500 MG, BID
     Dates: start: 20080723
  4. YAZ [Suspect]
     Indication: ACNE
  5. IBUPROFEN [Concomitant]
     Dosage: UNK
  6. NITROFURANTOIN [Concomitant]
     Dosage: 100 MG, BID
     Dates: start: 20080804
  7. HYDROCHLOROTHIAZIDE [Concomitant]
     Indication: ACNE
     Dosage: UNK
     Dates: start: 20080101, end: 20080701

REACTIONS (8)
  - PAIN [None]
  - ANHEDONIA [None]
  - ANXIETY [None]
  - PULMONARY ARTERIAL PRESSURE INCREASED [None]
  - DEPRESSION [None]
  - PULMONARY EMBOLISM [None]
  - DEEP VEIN THROMBOSIS [None]
  - TROPONIN INCREASED [None]
